FAERS Safety Report 4305024-0 (Version None)
Quarter: 2004Q1

REPORT INFORMATION
  Report Type: 
  Country: None (occurrence: None)
  Receive Date: 20040226
  Receipt Date: 20040220
  Transmission Date: 20041129
  Serious: Yes (Life-Threatening, Disabling, Other)
  Sender: FDA-Public Use
  Company Number: PHRM2004FR00926

PATIENT
  Age: 78 Year
  Sex: Male

DRUGS (5)
  1. TAREG [Suspect]
     Indication: HYPERTENSION
     Dosage: 160 MG, QD
     Route: 048
  2. NITROGLYCERIN [Suspect]
     Indication: CORONARY ARTERY ATHEROSCLEROSIS
     Dosage: 1 DF, QD
     Route: 062
  3. MONO-TILDIEM - SLOW RELEASE [Suspect]
     Indication: HYPERTENSION
     Dosage: 300 MG, QD
     Route: 048
  4. PLAVIX [Suspect]
     Dosage: 1 DF, QD
  5. LIPANTHYL ^BRISTOL-MYERS SQUIBB^ [Suspect]
     Dosage: 1 DF, QD
     Route: 065

REACTIONS (13)
  - ALANINE AMINOTRANSFERASE INCREASED [None]
  - ASPARTATE AMINOTRANSFERASE INCREASED [None]
  - BLOOD AMYLASE INCREASED [None]
  - BLOOD CREATININE INCREASED [None]
  - BLOOD LACTATE DEHYDROGENASE INCREASED [None]
  - BUNDLE BRANCH BLOCK RIGHT [None]
  - CARDIAC ARREST [None]
  - GLASGOW COMA SCALE ABNORMAL [None]
  - HYPERKALAEMIA [None]
  - LIPASE INCREASED [None]
  - MYDRIASIS [None]
  - PULSE ABSENT [None]
  - RENAL FAILURE ACUTE [None]
